FAERS Safety Report 25383674 (Version 1)
Quarter: 2025Q2

REPORT INFORMATION
  Report Type: Report from Study
  Country: ZA (occurrence: ZA)
  Receive Date: 20250602
  Receipt Date: 20250602
  Transmission Date: 20250717
  Serious: Yes (Other)
  Sender: ROCHE
  Company Number: ZA-ROCHE-10000295361

PATIENT
  Sex: Male

DRUGS (1)
  1. OCREVUS [Suspect]
     Active Substance: OCRELIZUMAB
     Indication: Multiple sclerosis
     Dosage: THERE AFTER 600MG IVI EVERY 6 MONTHS
     Route: 042
     Dates: start: 20241206

REACTIONS (1)
  - Multiple sclerosis [Unknown]
